FAERS Safety Report 9061228 (Version 1)
Quarter: 2013Q1

REPORT INFORMATION
  Report Type: Spontaneous
  Country: US (occurrence: None)
  Receive Date: 20130207
  Receipt Date: 20130207
  Transmission Date: 20140127
  Serious: Yes (Life-Threatening, Hospitalization)
  Sender: FDA-Public Use
  Company Number: None

PATIENT
  Age: 85 Year
  Sex: Male
  Weight: 58.97 kg

DRUGS (1)
  1. XARELTO [Suspect]
     Route: 048
     Dates: start: 20120413, end: 20120417

REACTIONS (2)
  - Haemorrhage [None]
  - Product quality issue [None]
